FAERS Safety Report 7142515-1 (Version None)
Quarter: 2010Q4

REPORT INFORMATION
  Report Type: 
  Country: None (occurrence: None)
  Receive Date: 20101207
  Receipt Date: 20101203
  Transmission Date: 20110411
  Serious: Yes (Death)
  Sender: FDA-Public Use
  Company Number: US-JNJFOC-20101202226

PATIENT
  Age: 47 Year
  Sex: Male

DRUGS (1)
  1. REOPRO [Suspect]
     Indication: ILL-DEFINED DISORDER

REACTIONS (1)
  - HAEMORRHAGE INTRACRANIAL [None]
